FAERS Safety Report 15538253 (Version 2)
Quarter: 2018Q4

REPORT INFORMATION
  Report Type: Spontaneous
  Country: PL (occurrence: PL)
  Receive Date: 20181022
  Receipt Date: 20181030
  Transmission Date: 20190205
  Serious: No
  Sender: FDA-Public Use
  Company Number: PL-PFIZER INC-2018422904

PATIENT
  Age: 30 Year
  Sex: Female

DRUGS (9)
  1. CEFTRIAXONE SODIUM. [Concomitant]
     Active Substance: CEFTRIAXONE SODIUM
  2. BOSENTAN. [Concomitant]
     Active Substance: BOSENTAN
  3. LEVOSIMENDAN [Concomitant]
     Active Substance: LEVOSIMENDAN
  4. NITROUS OXIDE. [Concomitant]
     Active Substance: NITROUS OXIDE
  5. DILTIAZEM HCL [Suspect]
     Active Substance: DILTIAZEM HYDROCHLORIDE
     Indication: PULMONARY HYPERTENSION
     Dosage: UNK
  6. SILDENAFIL CITRATE. [Concomitant]
     Active Substance: SILDENAFIL CITRATE
     Indication: PULMONARY HYPERTENSION
     Dosage: UNK
  7. EPOPROSTENOL. [Concomitant]
     Active Substance: EPOPROSTENOL
     Route: 042
  8. ILOPROST. [Concomitant]
     Active Substance: ILOPROST
  9. MILRINONE [Concomitant]
     Active Substance: MILRINONE

REACTIONS (1)
  - Product use in unapproved indication [Unknown]
